FAERS Safety Report 16750016 (Version 1)
Quarter: 2019Q3

REPORT INFORMATION
  Report Type: Spontaneous
  Country: US (occurrence: US)
  Receive Date: 20190828
  Receipt Date: 20190828
  Transmission Date: 20191005
  Serious: Yes (Hospitalization, Other)
  Sender: FDA-Public Use
  Company Number: US-AMGEN-USASP2019136148

PATIENT
  Age: 45 Year
  Sex: Female

DRUGS (2)
  1. NEULASTA [Suspect]
     Active Substance: PEGFILGRASTIM
     Dosage: UNK
     Route: 065
     Dates: start: 2019
  2. NEULASTA [Suspect]
     Active Substance: PEGFILGRASTIM
     Indication: NEUTROPENIA
     Dosage: UNK UNK, QWK
     Route: 065
     Dates: start: 201901, end: 20190615

REACTIONS (3)
  - Off label use [Unknown]
  - Unevaluable event [Unknown]
  - Product dose omission [Unknown]

NARRATIVE: CASE EVENT DATE: 201901
